FAERS Safety Report 5150208-5 (Version None)
Quarter: 2006Q4

REPORT INFORMATION
  Report Type: 
  Country: None (occurrence: None)
  Receive Date: 20061109
  Receipt Date: 20061109
  Transmission Date: 20070319
  Serious: Yes (Hospitalization)
  Sender: FDA-Public Use
  Company Number: None

PATIENT
  Age: 87 Year
  Sex: Female
  Weight: 64 kg

DRUGS (13)
  1. ACETAMINOPHEN [Suspect]
     Dosage: 325 MG OVERDOSE
     Dates: start: 20060704
  2. SYNTHROID [Concomitant]
  3. DIGOXIN [Concomitant]
  4. FUROSEMIDE [Concomitant]
  5. FERROUS SULFATE TAB [Concomitant]
  6. SINGULAIR [Concomitant]
  7. VASOTEC [Concomitant]
  8. .. [Concomitant]
  9. COLACE [Concomitant]
  10. .. [Concomitant]
  11. CALAN [Concomitant]
  12. MYSOLINE [Concomitant]
  13. ZOLOFT [Concomitant]

REACTIONS (3)
  - ALCOHOL POISONING [None]
  - ANALGESIC DRUG LEVEL ABOVE THERAPEUTIC [None]
  - OVERDOSE [None]
